FAERS Safety Report 14940720 (Version 3)
Quarter: 2018Q2

REPORT INFORMATION
  Report Type: Spontaneous
  Country: DE (occurrence: DE)
  Receive Date: 20180525
  Receipt Date: 20180618
  Transmission Date: 20180711
  Serious: Yes (Hospitalization, Other)
  Sender: FDA-Public Use
  Company Number: DE-TEVA-2018-DE-896911

PATIENT
  Sex: Female

DRUGS (10)
  1. DOXORUBICIN [Suspect]
     Active Substance: DOXORUBICIN
     Indication: B-CELL LYMPHOMA
     Dosage: 102.5 MILLIGRAM DAILY;
     Route: 042
     Dates: start: 20160702, end: 20160702
  2. CYCLOPHOSPHAMIDE. [Suspect]
     Active Substance: CYCLOPHOSPHAMIDE
     Dosage: 6 CYCLES OF CHLIP-14 (750 MG/M2,1)
     Route: 042
  3. DOXORUBICIN [Suspect]
     Active Substance: DOXORUBICIN
     Dosage: 6 CYCLES OF CHLIP-14 (50 MG/M2)
     Route: 042
  4. CYCLOPHOSPHAMIDE. [Suspect]
     Active Substance: CYCLOPHOSPHAMIDE
     Indication: B-CELL LYMPHOMA
     Dosage: 1537.5 MG, UNK (1 TIMES A DAY FOR 1 DAY)
     Route: 042
     Dates: start: 20160702, end: 20160702
  5. VINCRISTINE [Suspect]
     Active Substance: VINCRISTINE
     Indication: B-CELL LYMPHOMA
     Dosage: 4.1 MILLIGRAM DAILY;
     Route: 042
     Dates: start: 20160705, end: 20160705
  6. PEGFILGRASTIM [Suspect]
     Active Substance: PEGFILGRASTIM
     Indication: B-CELL LYMPHOMA
     Dosage: 6 MILLIGRAM DAILY;
     Route: 058
     Dates: start: 20160703, end: 20160703
  7. RITUXIMAB. [Suspect]
     Active Substance: RITUXIMAB
     Indication: B-CELL LYMPHOMA
     Dosage: 768.75 MILLIGRAM DAILY;
     Route: 042
     Dates: start: 20160701, end: 20160701
  8. PREDNISONE. [Suspect]
     Active Substance: PREDNISONE
     Indication: B-CELL LYMPHOMA
     Dosage: 100 MILLIGRAM DAILY;
     Route: 048
     Dates: start: 20160702, end: 20160706
  9. PREDNISONE. [Suspect]
     Active Substance: PREDNISONE
     Dosage: 6 CYCLES OF CHLIP-14 (100 MG)
     Route: 048
  10. VINCRISTINE [Suspect]
     Active Substance: VINCRISTINE
     Dosage: 6 CYCLES OF CHLIP-14 (1.4 MG/M2)
     Route: 042

REACTIONS (2)
  - Neutrophil count decreased [Unknown]
  - Embolism [Recovered/Resolved with Sequelae]

NARRATIVE: CASE EVENT DATE: 20160714
